FAERS Safety Report 5002764-5 (Version None)
Quarter: 2006Q2

REPORT INFORMATION
  Report Type: 
  Country: None (occurrence: None)
  Receive Date: 20060512
  Receipt Date: 20060505
  Transmission Date: 20061013
  Serious: Yes (Other)
  Sender: FDA-Public Use
  Company Number: 2006060130

PATIENT
  Sex: Male

DRUGS (3)
  1. MECLIZINE [Suspect]
     Dosage: SNORTED FOURT AND USED FOUR MORE, NASAL
     Route: 045
     Dates: start: 20060505, end: 20060505
  2. ETHANOL (ETHANOL) [Suspect]
     Dosage: ORAL
     Route: 048
  3. CANNABIS (CANNABIS) [Suspect]

REACTIONS (5)
  - ALCOHOL USE [None]
  - DRUG ABUSER [None]
  - INCORRECT ROUTE OF DRUG ADMINISTRATION [None]
  - INTENTIONAL DRUG MISUSE [None]
  - VISION BLURRED [None]
